FAERS Safety Report 7652358 (Version 2)
Quarter: 2012Q4

REPORT INFORMATION
  Report Type: 
  Country: US (occurrence: US)
  Receive Date: 20101101
  Receipt Date: 20120829
  Transmission Date: 20130627
  Serious: Yes (Death)
  Sender: FDA-Public Use
  Company Number: US-MYLANLABS-2010S1019256

PATIENT
  Age: 36 Year
  Sex: Female

DRUGS (10)
  1. FENTANYL TRANSDERMAL SYSTEM [Suspect]
     Indication: PAIN
     Dosage: q 48 hours
     Route: 062
     Dates: end: 20080926
  2. KETAMINE [Suspect]
  3. FLUVOXAMINE [Suspect]
  4. AMITRIPTYLINE [Suspect]
  5. GABAPENTIN [Concomitant]
  6. LORAZEPAM [Concomitant]
     Dosage: BID
  7. FEXOFENADINE [Concomitant]
  8. HYDROCODONE/APAP [Concomitant]
  9. EFFEXOR [Concomitant]
  10. RESTORIL [Concomitant]
     Indication: INSOMNIA

REACTIONS (3)
  - Toxicity to various agents [Fatal]
  - Cardiopulmonary failure [Fatal]
  - Overdose [Fatal]
